FAERS Safety Report 8412802-5 (Version None)
Quarter: 2012Q2

REPORT INFORMATION
  Report Type: 
  Country: None (occurrence: None)
  Receive Date: 20120605
  Receipt Date: 20120523
  Transmission Date: 20120825
  Serious: No
  Sender: FDA-Public Use
  Company Number: US-AMGEN-USASP2012032775

PATIENT
  Age: 73 Year
  Sex: Male

DRUGS (1)
  1. ENBREL [Suspect]
     Indication: RHEUMATOID ARTHRITIS
     Dosage: 50 MG, QWK

REACTIONS (6)
  - MUSCULOSKELETAL PAIN [None]
  - WEIGHT INCREASED [None]
  - PAIN [None]
  - PAIN IN EXTREMITY [None]
  - BACK PAIN [None]
  - FATIGUE [None]
